FAERS Safety Report 6619565-4 (Version None)
Quarter: 2010Q1

REPORT INFORMATION
  Report Type: 
  Country: None (occurrence: None)
  Receive Date: 20100309
  Receipt Date: 20100225
  Transmission Date: 20100710
  Serious: No
  Sender: FDA-Public Use
  Company Number: US-B.I. PHARMACEUTICALS,INC./RIDGEFIELD-2009-BP-09817BP

PATIENT
  Sex: Female

DRUGS (2)
  1. SPIRIVA [Suspect]
     Indication: CHRONIC OBSTRUCTIVE PULMONARY DISEASE
     Dosage: 18 MCG
     Route: 055
     Dates: start: 20080401
  2. VITAMINS [Concomitant]
     Indication: SUPPLEMENTATION THERAPY

REACTIONS (10)
  - BLEPHARITIS [None]
  - DRY MOUTH [None]
  - EYE SWELLING [None]
  - LACRIMATION INCREASED [None]
  - LIP SWELLING [None]
  - OCULAR HYPERAEMIA [None]
  - OEDEMA MOUTH [None]
  - OSTEOPOROSIS [None]
  - ROSACEA [None]
  - WHEEZING [None]
